FAERS Safety Report 21044241 (Version 1)
Quarter: 2022Q3

REPORT INFORMATION
  Report Type: Spontaneous
  Country: US (occurrence: US)
  Receive Date: 20220705
  Receipt Date: 20220705
  Transmission Date: 20221027
  Serious: No
  Sender: FDA-Public Use
  Company Number: US-BAYER-2022A092461

PATIENT
  Age: 15 Year
  Sex: Male

DRUGS (3)
  1. ASPIRIN [Suspect]
     Active Substance: ASPIRIN
  2. NAPROXEN SODIUM [Suspect]
     Active Substance: NAPROXEN SODIUM
  3. VALPROATE [Concomitant]
     Active Substance: VALPROIC ACID
     Indication: Migraine
     Dosage: 750 MG, BID

REACTIONS (1)
  - Drug ineffective [None]
